FAERS Safety Report 6737529-7 (Version None)
Quarter: 2010Q2

REPORT INFORMATION
  Report Type: 
  Country: None (occurrence: None)
  Receive Date: 20100524
  Receipt Date: 20100512
  Transmission Date: 20101027
  Serious: Yes (Other)
  Sender: FDA-Public Use
  Company Number: JP-JNJFOC-20100506427

PATIENT
  Age: 73 Year
  Sex: Female

DRUGS (7)
  1. REMICADE [Suspect]
     Indication: COLLAGEN DISORDER
     Route: 042
  2. ISONIAZID [Suspect]
     Indication: DISSEMINATED TUBERCULOSIS
  3. STREPTOMYCIN [Suspect]
     Indication: DISSEMINATED TUBERCULOSIS
  4. RIFAMPIN [Suspect]
     Indication: DISSEMINATED TUBERCULOSIS
  5. CIPROFLOXACIN [Suspect]
     Indication: DISSEMINATED TUBERCULOSIS
  6. ETHAMBUTOL [Suspect]
     Indication: DISSEMINATED TUBERCULOSIS
  7. PYRAZINAMIDE [Suspect]
     Indication: DISSEMINATED TUBERCULOSIS

REACTIONS (6)
  - DERMATITIS EXFOLIATIVE [None]
  - DISSEMINATED TUBERCULOSIS [None]
  - DRUG HYPERSENSITIVITY [None]
  - HEPATIC FUNCTION ABNORMAL [None]
  - PNEUMONIA [None]
  - PYREXIA [None]
